FAERS Safety Report 8485320-6 (Version None)
Quarter: 2012Q3

REPORT INFORMATION
  Report Type: 
  Country: None (occurrence: None)
  Receive Date: 20120703
  Receipt Date: 20120625
  Transmission Date: 20120928
  Serious: Yes (Death, Hospitalization)
  Sender: FDA-Public Use
  Company Number: US-ROCHE-1073539

PATIENT
  Sex: Male

DRUGS (11)
  1. LISINOPRIL AND HYDROCHLOROTHIAZIDE [Concomitant]
     Dosage: 20-25 MG AS DIRECTED
     Route: 048
  2. ZOFRAN [Concomitant]
  3. SIMVASTATIN [Concomitant]
     Dosage: 1 TAB QHS
     Route: 048
  4. ALLOPURINOL [Concomitant]
     Route: 048
  5. ASPIRIN [Concomitant]
     Route: 048
  6. XELODA [Suspect]
     Indication: PRODUCT USED FOR UNKNOWN INDICATION
     Route: 065
  7. AMBIEN [Concomitant]
  8. ACETAMINOPHEN [Concomitant]
     Route: 048
  9. HEPARIN [Concomitant]
     Dosage: 100UNIT/ML
     Route: 042
  10. MORPHINE SULFATE [Concomitant]
     Dosage: 1-2 TABS Q3-4H
  11. MS CONTIN [Concomitant]

REACTIONS (2)
  - ARTHRALGIA [None]
  - COLON CANCER METASTATIC [None]
